FAERS Safety Report 4692535-1 (Version None)
Quarter: 2005Q2

REPORT INFORMATION
  Report Type: 
  Country: None (occurrence: None)
  Receive Date: 20050617
  Receipt Date: 20050322
  Transmission Date: 20051028
  Serious: Yes (Hospitalization)
  Sender: FDA-Public Use
  Company Number: US-MERCK-0503USA04207

PATIENT
  Age: 50 Year
  Sex: Female
  Weight: 122 kg

DRUGS (9)
  1. VIOXX [Suspect]
     Indication: ARTHRITIS
     Route: 048
     Dates: start: 20021227
  2. VIOXX [Suspect]
     Route: 048
     Dates: end: 20040830
  3. PROVIGIL [Concomitant]
     Route: 065
  4. METHYLPHENIDATE [Concomitant]
     Route: 065
  5. PREVACID [Concomitant]
     Route: 065
  6. HYOSCYAMINE [Concomitant]
     Route: 065
  7. ACETAMINOPHEN [Concomitant]
     Route: 065
  8. ALENDRONATE SODIUM [Concomitant]
     Route: 065
  9. CALCIUM (UNSPECIFIED) [Concomitant]
     Route: 065

REACTIONS (7)
  - ANXIETY [None]
  - BLOOD PRESSURE INCREASED [None]
  - CEREBROVASCULAR ACCIDENT [None]
  - CHEST PAIN [None]
  - DIABETES MELLITUS [None]
  - HYPERSENSITIVITY [None]
  - MUSCULOSKELETAL DISORDER [None]
